FAERS Safety Report 22683160 (Version 2)
Quarter: 2023Q4

REPORT INFORMATION
  Report Type: Spontaneous
  Country: US (occurrence: US)
  Receive Date: 20230707
  Receipt Date: 20231003
  Transmission Date: 20240110
  Serious: Yes (Other)
  Sender: FDA-Public Use
  Company Number: US-SA-2023SA204875

PATIENT
  Age: 71 Year
  Sex: Male

DRUGS (1)
  1. LIBTAYO [Suspect]
     Active Substance: CEMIPLIMAB-RWLC
     Indication: Squamous cell carcinoma of lung
     Dosage: UNK UNK, QCY
     Dates: start: 201812, end: 2019

REACTIONS (6)
  - Radiation pneumonitis [Recovering/Resolving]
  - Lung consolidation [Recovering/Resolving]
  - Dyspnoea exertional [Recovering/Resolving]
  - Rash [Recovering/Resolving]
  - Lung infiltration [Recovering/Resolving]
  - Pulmonary radiation injury [Recovering/Resolving]

NARRATIVE: CASE EVENT DATE: 20190101
